FAERS Safety Report 8492672-X (Version None)
Quarter: 2012Q3

REPORT INFORMATION
  Report Type: 
  Country: None (occurrence: None)
  Receive Date: 20120706
  Receipt Date: 20120627
  Transmission Date: 20120928
  Serious: Yes (Hospitalization)
  Sender: FDA-Public Use
  Company Number: JP-VERTEX PHARMACEUTICALS INC.-AE-2012-007988

PATIENT
  Age: 61 Year
  Sex: Male

DRUGS (10)
  1. GLYCYRON [Concomitant]
     Route: 048
     Dates: start: 20120621
  2. URALYT [Concomitant]
     Route: 048
  3. ALLOPURINOL [Concomitant]
     Route: 048
  4. RIBAVIRIN [Concomitant]
     Indication: HEPATITIS C
     Route: 048
     Dates: start: 20120403, end: 20120406
  5. HIRUDOID [Concomitant]
     Route: 061
     Dates: start: 20120403
  6. TELAVIC (TELAPREVIR) [Suspect]
     Route: 048
     Dates: start: 20120407, end: 20120518
  7. PEGINTERFERON ALFA-2B [Concomitant]
     Indication: HEPATITIS C
     Route: 058
     Dates: start: 20120403
  8. TELAVIC (TELAPREVIR) [Suspect]
     Indication: HEPATITIS C
     Route: 048
     Dates: start: 20120403, end: 20120406
  9. NEOPHAGEN [Concomitant]
     Dates: start: 20120413, end: 20120501
  10. RIBAVIRIN [Concomitant]
     Route: 048
     Dates: start: 20120407

REACTIONS (2)
  - RENAL DISORDER [None]
  - RASH [None]
